FAERS Safety Report 9187470 (Version 2)
Quarter: 2013Q2

REPORT INFORMATION
  Report Type: Spontaneous
  Country: FR (occurrence: FR)
  Receive Date: 20130325
  Receipt Date: 20130408
  Transmission Date: 20140414
  Serious: Yes (Life-Threatening, Other)
  Sender: FDA-Public Use
  Company Number: FR-ASTRAZENECA-2013SE18860

PATIENT
  Age: 3 Month
  Sex: Female
  Weight: 2.6 kg

DRUGS (5)
  1. SYNAGIS [Suspect]
     Indication: INFECTION PROPHYLAXIS
     Route: 030
  2. ALDACTONE [Concomitant]
     Indication: BRONCHOPULMONARY DYSPLASIA
     Route: 048
  3. FLUTICASONE [Concomitant]
     Indication: BRONCHOPULMONARY DYSPLASIA
     Route: 045
  4. FERROSTRANE [Concomitant]
     Indication: ANAEMIA PROPHYLAXIS
     Route: 048
  5. SPECIAFOLDINE [Concomitant]
     Indication: ANAEMIA PROPHYLAXIS
     Route: 048

REACTIONS (1)
  - Bronchiolitis [Unknown]
